FAERS Safety Report 17694924 (Version 7)
Quarter: 2020Q2

REPORT INFORMATION
  Report Type: Report from Study
  Country: US (occurrence: US)
  Receive Date: 20200422
  Receipt Date: 20200526
  Transmission Date: 20200714
  Serious: Yes (Death, Hospitalization)
  Sender: FDA-Public Use
  Company Number: US-REGENERON PHARMACEUTICALS, INC.-2020-30941

PATIENT

DRUGS (46)
  1. AMLODIPINE [Concomitant]
     Active Substance: AMLODIPINE BESYLATE
     Indication: HYPERTENSION
     Dosage: 10 MG, QD
     Route: 048
     Dates: start: 20180918
  2. CALCIUM CARBONATE. [Concomitant]
     Active Substance: CALCIUM CARBONATE
     Indication: IRRITABLE BOWEL SYNDROME
     Dosage: UNK
     Route: 048
     Dates: start: 20180624
  3. ZOFRAN [Concomitant]
     Active Substance: ONDANSETRON HYDROCHLORIDE
     Indication: PROPHYLAXIS OF NAUSEA AND VOMITING
     Dosage: 8 MG, AS NECESSARY
     Route: 048
     Dates: start: 20190624
  4. CREON [Concomitant]
     Active Substance: PANCRELIPASE AMYLASE\PANCRELIPASE LIPASE\PANCRELIPASE PROTEASE
     Indication: ANTIPHOSPHOLIPID SYNDROME
     Dosage: 1 CAPSULE, QD
     Route: 048
     Dates: start: 20181211
  5. IMODIUM [Concomitant]
     Active Substance: LOPERAMIDE HYDROCHLORIDE
     Indication: COLITIS
     Dosage: 2 MG, AS NECESSARY
     Route: 048
     Dates: start: 20200314, end: 20200315
  6. MAGNESIUM SULFATE. [Concomitant]
     Active Substance: MAGNESIUM SULFATE
     Indication: PROPHYLAXIS
     Dosage: 1 G, AS NECESSARY
     Route: 042
     Dates: start: 20200312, end: 20200314
  7. HYDRALAZINE [Concomitant]
     Active Substance: HYDRALAZINE HYDROCHLORIDE
     Indication: HYPERTENSION
     Dosage: 10 MG, AS NECESSARY
     Route: 042
     Dates: start: 20200311, end: 20200315
  8. VERSED [Concomitant]
     Active Substance: MIDAZOLAM HYDROCHLORIDE
     Indication: ANAESTHESIA PROCEDURE
  9. LISINOPRIL. [Concomitant]
     Active Substance: LISINOPRIL
     Dosage: 40 MG, QD
     Route: 048
     Dates: start: 20200328, end: 20200401
  10. LOPERAMIDE [Concomitant]
     Active Substance: LOPERAMIDE
     Indication: IRRITABLE BOWEL SYNDROME
     Dosage: 2 MG, AS NECESSARY
     Route: 048
     Dates: start: 20190624
  11. MELATONIN [Concomitant]
     Active Substance: MELATONIN
     Indication: INSOMNIA
     Dosage: 5 MG, QD
     Route: 048
     Dates: start: 20181211
  12. SOLU-MEDROL [Concomitant]
     Active Substance: METHYLPREDNISOLONE SODIUM SUCCINATE
     Indication: COLITIS
     Dosage: 90 MG, QD
     Route: 042
     Dates: start: 20200309, end: 20200314
  13. POTASSIUM CHLORIDE. [Concomitant]
     Active Substance: POTASSIUM CHLORIDE
     Indication: PROPHYLAXIS
     Dosage: 10 MEQ, AS NECESSARY
     Route: 042
     Dates: start: 20200310, end: 20200314
  14. POTASSIUM CHLORIDE. [Concomitant]
     Active Substance: POTASSIUM CHLORIDE
     Dosage: 40 MEQ, SINGLE
     Route: 048
     Dates: start: 20200331, end: 20200331
  15. INSULIN NPH                        /01223208/ [Concomitant]
     Active Substance: INSULIN BEEF
     Indication: HYPERGLYCAEMIA
     Dosage: 10 IU, BID
     Route: 058
     Dates: start: 20200330, end: 20200331
  16. LACTATED RINGERS SOLUTION [Concomitant]
     Active Substance: CALCIUM CHLORIDE\POTASSIUM CHLORIDE\SODIUM CHLORIDE\SODIUM LACTATE
     Indication: DIARRHOEA
     Dosage: 1000 ML, AS NECESSARY
     Route: 042
     Dates: start: 20200309, end: 20200311
  17. PROBIOTIC                          /06395501/ [Concomitant]
     Active Substance: BIFIDOBACTERIUM ANIMALIS LACTIS
     Indication: IRRITABLE BOWEL SYNDROME
     Dosage: 70 MG, QD
     Route: 048
     Dates: start: 20180919
  18. LISINOPRIL. [Concomitant]
     Active Substance: LISINOPRIL
     Indication: HYPERTENSION
     Dosage: 40 MG, QD
     Route: 048
     Dates: start: 20180816
  19. LISINOPRIL. [Concomitant]
     Active Substance: LISINOPRIL
     Dosage: 40 MG, SINGLE
     Route: 048
     Dates: start: 20200315, end: 20200315
  20. SENOKOT-S [Concomitant]
     Active Substance: DOCUSATE SODIUM\SENNOSIDES
     Indication: IRRITABLE BOWEL SYNDROME
     Dosage: 2 TABLETS, BID
     Route: 048
     Dates: start: 20181010
  21. ZOSYN [Concomitant]
     Active Substance: PIPERACILLIN SODIUM\TAZOBACTAM SODIUM
     Indication: COLITIS
     Dosage: 2.25 G, EVERY 6 HOURS
     Route: 042
     Dates: start: 20200307, end: 20200313
  22. FENTANYL. [Concomitant]
     Active Substance: FENTANYL
     Indication: ABDOMINAL PAIN
     Dosage: 25 ?G, AS NECESSARY
     Route: 042
     Dates: start: 20200308, end: 20200312
  23. PANTOPRAZOLE [Concomitant]
     Active Substance: PANTOPRAZOLE
     Dosage: 40 UNK, UNK
     Route: 048
     Dates: start: 20200326, end: 20200330
  24. REGN3767 [Suspect]
     Active Substance: FIANLIMAB
     Indication: CLEAR CELL RENAL CELL CARCINOMA
     Dosage: 1600 MG, Q3W
     Route: 042
     Dates: start: 20190624, end: 20200302
  25. TYLENOL [Concomitant]
     Active Substance: ACETAMINOPHEN
     Indication: PAIN PROPHYLAXIS
     Dosage: 650 MG, AS NECESSARY
     Route: 048
     Dates: start: 20180920
  26. LOPERAMIDE [Concomitant]
     Active Substance: LOPERAMIDE
     Indication: DIARRHOEA
     Dosage: 2 MG, AS NECESSARY
     Route: 048
     Dates: start: 20200314, end: 20200315
  27. LOPRESSOR [Concomitant]
     Active Substance: METOPROLOL TARTRATE
     Indication: HYPERTENSION
     Dosage: 25 MG, BID
     Route: 048
     Dates: start: 20181211
  28. SODIUM CHLORIDE. [Concomitant]
     Active Substance: SODIUM CHLORIDE
     Dosage: 1000 UNK, UNK
     Route: 042
     Dates: start: 20200313, end: 20200313
  29. MAGNESIUM SULFATE. [Concomitant]
     Active Substance: MAGNESIUM SULFATE
     Dosage: 1 G, AS NECESSARY
     Route: 042
     Dates: start: 20200331, end: 20200331
  30. INFLIXIMAB [Concomitant]
     Active Substance: INFLIXIMAB
     Indication: COLITIS
     Dosage: 350 MG, AS NECESSARY
     Route: 042
     Dates: start: 20200326, end: 20200328
  31. LOMOTIL [Concomitant]
     Active Substance: ATROPINE SULFATE\DIPHENOXYLATE HYDROCHLORIDE
     Indication: COLITIS
     Dosage: 1 TABLET, EVERY 6 HOURS
     Route: 048
     Dates: start: 20200326, end: 20200401
  32. CEMIPLIMAB [Suspect]
     Active Substance: CEMIPLIMAB
     Indication: CLEAR CELL RENAL CELL CARCINOMA
     Dosage: 350 MG, Q3W
     Route: 042
     Dates: start: 20190624, end: 20200302
  33. XARELTO [Concomitant]
     Active Substance: RIVAROXABAN
     Indication: PROPHYLAXIS
     Dosage: 20 MG, QD
     Route: 048
     Dates: start: 20190606
  34. ZOSYN [Concomitant]
     Active Substance: PIPERACILLIN SODIUM\TAZOBACTAM SODIUM
     Dosage: 3.375 G, EVERY 6 HOURS
     Route: 042
     Dates: start: 20200313, end: 20200314
  35. PREDNISONE. [Concomitant]
     Active Substance: PREDNISONE
     Indication: COLITIS
     Dosage: 40 MG, BID
     Route: 048
     Dates: start: 20200315
  36. AMIODARONE [Concomitant]
     Active Substance: AMIODARONE
     Indication: ATRIAL FIBRILLATION
     Dosage: 17 ML/HR, INTERMITTENT
     Route: 042
     Dates: start: 20200308, end: 20200311
  37. INSULIN GLARGINE [Concomitant]
     Active Substance: INSULIN GLARGINE
     Indication: HYPERGLYCAEMIA
     Dosage: 10 IU, SINGLE
     Route: 058
     Dates: start: 20200329, end: 20200329
  38. ATIVAN [Concomitant]
     Active Substance: LORAZEPAM
     Indication: ANXIETY
     Dosage: 0.5 MG, AS NECESSARY
     Route: 048
     Dates: start: 20190624
  39. METRONIDAZOLE. [Concomitant]
     Active Substance: METRONIDAZOLE
     Indication: COLITIS
     Dosage: 500 MG, EVERY 8 HOURS
     Route: 042
     Dates: start: 20200307, end: 20200311
  40. PHENYLEPHRINE [Concomitant]
     Active Substance: PHENYLEPHRINE HYDROCHLORIDE
     Indication: ATRIAL FIBRILLATION
     Dosage: 123.9 ML/HR, INTERMITTENT
     Route: 042
     Dates: start: 20200308, end: 20200309
  41. SODIUM CHLORIDE. [Concomitant]
     Active Substance: SODIUM CHLORIDE
     Indication: BLOOD CREATININE INCREASED
     Dosage: 250 ML, SINGLE
     Route: 042
     Dates: start: 20200309, end: 20200309
  42. PANTOPRAZOLE [Concomitant]
     Active Substance: PANTOPRAZOLE
     Indication: PROPHYLAXIS
     Dosage: 40 MG, QD
     Route: 042
     Dates: start: 20200309, end: 20200314
  43. METHYLPREDNISOLONE. [Concomitant]
     Active Substance: METHYLPREDNISOLONE
     Indication: COLITIS
     Dosage: 90 MG, QD
     Route: 042
     Dates: start: 20200309, end: 20200314
  44. LABETALOL [Concomitant]
     Active Substance: LABETALOL\LABETALOL HYDROCHLORIDE
     Indication: HYPERTENSION
     Dosage: 10 MG, SINGLE
     Route: 042
     Dates: start: 20200311, end: 20200311
  45. INSULIN ASPART [Concomitant]
     Active Substance: INSULIN ASPART
     Indication: HYPERGLYCAEMIA
     Dosage: 2 IU, AS NECESSARY
     Route: 058
     Dates: start: 20200327, end: 20200331
  46. INSULIN NPH                        /01223208/ [Concomitant]
     Active Substance: INSULIN BEEF
     Dosage: 14 IU, BID
     Route: 058
     Dates: start: 20200331, end: 20200401

REACTIONS (7)
  - Sepsis [Not Recovered/Not Resolved]
  - Colitis [Recovered/Resolved]
  - Melaena [Recovering/Resolving]
  - Intestinal perforation [Not Recovered/Not Resolved]
  - Methaemoglobinaemia [Recovering/Resolving]
  - Respiratory failure [Fatal]
  - Colitis [Recovered/Resolved]

NARRATIVE: CASE EVENT DATE: 20200409
